FAERS Safety Report 17777095 (Version 6)
Quarter: 2023Q2

REPORT INFORMATION
  Report Type: Report from Study
  Country: US (occurrence: US)
  Receive Date: 20200513
  Receipt Date: 20230406
  Transmission Date: 20230721
  Serious: Yes (Death, Other)
  Sender: FDA-Public Use
  Company Number: US-ACADIA PHARMACEUTICALS INC.-ACA-2019-014360

PATIENT
  Age: 73 Year
  Sex: Male

DRUGS (13)
  1. NUPLAZID [Suspect]
     Active Substance: PIMAVANSERIN TARTRATE
     Indication: Parkinson^s disease
     Dosage: 34 MG, QD
     Route: 048
     Dates: start: 20190420
  2. CARBIDOPA\LEVODOPA [Concomitant]
     Active Substance: CARBIDOPA\LEVODOPA
  3. DONEPEZIL [Concomitant]
     Active Substance: DONEPEZIL
  4. LOSARTAN POTASSIUM [Concomitant]
     Active Substance: LOSARTAN POTASSIUM
  5. OMEPRAZOLE [Concomitant]
     Active Substance: OMEPRAZOLE
  6. PRAVASTATIN [Concomitant]
     Active Substance: PRAVASTATIN
  7. QUETIAPINE [Concomitant]
     Active Substance: QUETIAPINE
  8. ROPINIROLE [Concomitant]
     Active Substance: ROPINIROLE
  9. SERTRALINE [Concomitant]
     Active Substance: SERTRALINE HYDROCHLORIDE
  10. GOCOVRI [Concomitant]
     Active Substance: AMANTADINE
     Dosage: 68.5 MG
  11. METOPROLOL SUCCINATE [Concomitant]
     Active Substance: METOPROLOL SUCCINATE
  12. SIMVASTATIN [Concomitant]
     Active Substance: SIMVASTATIN
  13. METOPROLOL [Concomitant]
     Active Substance: METOPROLOL

REACTIONS (13)
  - Death [Recovered/Resolved]
  - Tremor [Not Recovered/Not Resolved]
  - Tremor [Unknown]
  - Adverse drug reaction [Not Recovered/Not Resolved]
  - Balance disorder [Unknown]
  - Dizziness [Not Recovered/Not Resolved]
  - Movement disorder [Not Recovered/Not Resolved]
  - Tremor [Not Recovered/Not Resolved]
  - Rash [Unknown]
  - Fall [Unknown]
  - Hallucination [Not Recovered/Not Resolved]
  - Hallucination [Unknown]
  - Hallucination [Not Recovered/Not Resolved]

NARRATIVE: CASE EVENT DATE: 20200201
